FAERS Safety Report 7748988-5 (Version None)
Quarter: 2011Q3

REPORT INFORMATION
  Report Type: 
  Country: None (occurrence: None)
  Receive Date: 20110914
  Receipt Date: 20101213
  Transmission Date: 20111222
  Serious: No
  Sender: FDA-Public Use
  Company Number: US-MYLANLABS-2010S1022892

PATIENT
  Sex: Male

DRUGS (2)
  1. DIOVAN HCT [Interacting]
     Indication: BLOOD PRESSURE INCREASED
     Route: 048
  2. SPIRONOLACTONE AND HYDROCHLOROTHIAZIDE [Suspect]
     Indication: BLOOD PRESSURE INCREASED
     Route: 048

REACTIONS (2)
  - DRUG INTERACTION [None]
  - ABDOMINAL PAIN UPPER [None]
